FAERS Safety Report 6040476-X (Version None)
Quarter: 2009Q1

REPORT INFORMATION
  Report Type: 
  Country: None (occurrence: None)
  Receive Date: 20090116
  Receipt Date: 20080314
  Transmission Date: 20090719
  Serious: No
  Sender: FDA-Public Use
  Company Number: US-BRISTOL-MYERS SQUIBB COMPANY-14115695

PATIENT
  Age: 60 Year
  Sex: Female
  Weight: 62 kg

DRUGS (9)
  1. ABILIFY [Suspect]
     Indication: BIPOLAR DISORDER
     Dates: start: 20080313
  2. KLONOPIN [Concomitant]
  3. XANAX [Concomitant]
  4. SEROQUEL [Concomitant]
  5. CHLORAL HYDRATE [Concomitant]
     Dates: end: 20080310
  6. AVONEX [Concomitant]
  7. TIZANIDINE HCL [Concomitant]
  8. FOSAMAX [Concomitant]
  9. BACTRIM [Concomitant]

REACTIONS (2)
  - DIZZINESS [None]
  - NAUSEA [None]
